FAERS Safety Report 6912434-1 (Version None)
Quarter: 2010Q3

REPORT INFORMATION
  Report Type: 
  Country: None (occurrence: None)
  Receive Date: 20100806
  Receipt Date: 20080512
  Transmission Date: 20110219
  Serious: Yes (Other)
  Sender: FDA-Public Use
  Company Number: US-PFIZER INC-2008027758

PATIENT
  Sex: Male
  Weight: 72.727 kg

DRUGS (10)
  1. NORPACE [Suspect]
     Indication: ATRIAL FIBRILLATION
     Route: 048
     Dates: start: 20080201
  2. NORPACE [Suspect]
     Route: 048
     Dates: start: 20080221
  3. WARFARIN SODIUM [Concomitant]
  4. MYLANTA [Concomitant]
  5. LEVBID [Concomitant]
  6. VYTORIN [Concomitant]
  7. CITRUCEL [Concomitant]
  8. CALCIUM [Concomitant]
  9. VITAMIN D [Concomitant]
  10. ASCORBIC ACID [Concomitant]

REACTIONS (5)
  - ATRIAL FIBRILLATION [None]
  - CONDITION AGGRAVATED [None]
  - IRRITABLE BOWEL SYNDROME [None]
  - PLATELET COUNT DECREASED [None]
  - RASH [None]
